FAERS Safety Report 7059948-4 (Version None)
Quarter: 2010Q4

REPORT INFORMATION
  Report Type: 
  Country: None (occurrence: None)
  Receive Date: 20101025
  Receipt Date: 20101018
  Transmission Date: 20110411
  Serious: Yes (Hospitalization)
  Sender: FDA-Public Use
  Company Number: US-SANOFI-AVENTIS-2010SA064265

PATIENT
  Age: 77 Year
  Sex: Male
  Weight: 197 kg

DRUGS (16)
  1. TAXOTERE [Suspect]
     Indication: PROSTATE CANCER
     Dosage: (FREQUENCY REPORTED AS DAILY)
     Route: 041
     Dates: start: 20100715, end: 20100715
  2. TAXOTERE [Suspect]
     Dosage: (FREQUENCY REPORTED AS DAILY)
     Route: 041
     Dates: start: 20100916, end: 20100916
  3. INVESTIGATIONAL DRUG [Suspect]
     Indication: PROSTATE CANCER
     Route: 048
     Dates: start: 20100715
  4. INVESTIGATIONAL DRUG [Suspect]
     Route: 048
     Dates: start: 20100916
  5. PREDNISONE [Suspect]
     Indication: PROSTATE CANCER
     Route: 048
     Dates: start: 20100715
  6. PREDNISONE [Suspect]
     Route: 048
     Dates: start: 20100916
  7. CALCIUM CARBONATE [Concomitant]
     Indication: BONE DENSITY ABNORMAL
     Dosage: DOSE- 2 TAB
     Route: 048
     Dates: start: 20100410
  8. CLONAZEPAM [Concomitant]
     Route: 048
     Dates: start: 20050101
  9. AMLODIPINE/VALSARTAN [Concomitant]
     Indication: HYPERTENSION
     Route: 048
     Dates: start: 20100501
  10. CYCLOBENZAPRINE [Concomitant]
     Route: 048
     Dates: start: 20100101
  11. CYCLOBENZAPRINE [Concomitant]
     Indication: ARTHRITIS
     Route: 048
     Dates: start: 20100101
  12. MEGESTROL ACETATE [Concomitant]
     Route: 048
     Dates: start: 20080101
  13. ESOMEPRAZOLE [Concomitant]
     Route: 048
     Dates: start: 20060101
  14. NIFEDIPINE [Concomitant]
     Indication: HYPERTENSION
     Route: 048
     Dates: start: 20070101
  15. SIMVASTATIN [Concomitant]
     Route: 048
     Dates: start: 20040101
  16. HEPARIN [Concomitant]

REACTIONS (5)
  - DEHYDRATION [None]
  - DIVERTICULITIS [None]
  - HYPOKALAEMIA [None]
  - RENAL FAILURE ACUTE [None]
  - SEPTIC SHOCK [None]
